FAERS Safety Report 6470852-2 (Version None)
Quarter: 2009Q4

REPORT INFORMATION
  Report Type: 
  Country: None (occurrence: None)
  Receive Date: 20091119
  Receipt Date: 20090921
  Transmission Date: 20100525
  Serious: No
  Sender: FDA-Public Use
  Company Number: WAES 0909USA03166

PATIENT
  Age: 86 Year
  Sex: Male

DRUGS (1)
  1. JANUVIA [Suspect]
     Indication: DIABETES MELLITUS
     Dosage: 100 MG/1X/PO
     Route: 048
     Dates: start: 20090919, end: 20090919

REACTIONS (1)
  - PROSTATIC HAEMORRHAGE [None]
